FAERS Safety Report 4633173-6 (Version None)
Quarter: 2005Q2

REPORT INFORMATION
  Report Type: 
  Country: None (occurrence: None)
  Receive Date: 20050411
  Receipt Date: 20050411
  Transmission Date: 20051028
  Serious: Yes (Hospitalization, Disabling, Other)
  Sender: FDA-Public Use
  Company Number: None

PATIENT
  Age: 31 Year
  Sex: Male
  Weight: 102.0593 kg

DRUGS (7)
  1. CORICIDIN D SRT [Suspect]
     Indication: UPPER RESPIRATORY TRACT INFECTION
     Dosage: ORAL
     Route: 048
     Dates: start: 19990321, end: 19990402
  2. ALKA-SELTZER PLUS COLD MEDICINE [Concomitant]
  3. ALKA-SELTZER PLUS COL AND COUGH MEDICINE [Concomitant]
  4. NASAL PREPARATION [Concomitant]
  5. DILTIAZEM HYDROCHLORIDE [Concomitant]
  6. PROZAC [Concomitant]
  7. ZOLOFT [Concomitant]

REACTIONS (12)
  - AMNESIA [None]
  - ANEURYSM RUPTURED [None]
  - DEPRESSION [None]
  - DIZZINESS [None]
  - HAEMORRHAGIC STROKE [None]
  - HYPERTENSION [None]
  - NAUSEA [None]
  - SENSATION OF HEAVINESS [None]
  - SUBARACHNOID HAEMORRHAGE [None]
  - SUBDURAL HAEMATOMA [None]
  - VISION BLURRED [None]
  - VOMITING [None]
